FAERS Safety Report 7470240-6 (Version None)
Quarter: 2011Q2

REPORT INFORMATION
  Report Type: 
  Country: None (occurrence: None)
  Receive Date: 20110510
  Receipt Date: 20110503
  Transmission Date: 20111010
  Serious: Yes (Other)
  Sender: FDA-Public Use
  Company Number: PHHY2010IT88097

PATIENT
  Age: 37 Year
  Sex: Female
  Weight: 90 kg

DRUGS (1)
  1. CYCLOSPORINE [Suspect]
     Indication: DERMATITIS CONTACT
     Dosage: 250 MG DAILY

REACTIONS (3)
  - ERYTHEMA [None]
  - SKIN EXFOLIATION [None]
  - SKIN LESION [None]
